FAERS Safety Report 9259426 (Version 1)
Quarter: 2013Q2

REPORT INFORMATION
  Report Type: Spontaneous
  Country: US (occurrence: US)
  Receive Date: 20130428
  Receipt Date: 20130428
  Transmission Date: 20140414
  Serious: No
  Sender: FDA-Public Use
  Company Number: US-ASTRAZENECA-2009UW05935

PATIENT
  Age: 57 Year
  Sex: Female
  Weight: 72.6 kg

DRUGS (3)
  1. SEROQUEL [Suspect]
     Route: 048
  2. LORAZEPAM [Concomitant]
  3. HCTZ [Concomitant]

REACTIONS (2)
  - Systemic lupus erythematosus [Unknown]
  - Weight increased [Unknown]
